FAERS Safety Report 12971794 (Version 2)
Quarter: 2016Q4

REPORT INFORMATION
  Report Type: Report from Study
  Country: None (occurrence: KR)
  Receive Date: 20161124
  Receipt Date: 20161213
  Transmission Date: 20170207
  Serious: Yes (Hospitalization)
  Sender: FDA-Public Use
  Company Number: KR-ABBVIE-16K-090-1785297-00

PATIENT
  Age: 67 Year
  Sex: Male
  Weight: 56 kg

DRUGS (20)
  1. HUMIRA [Suspect]
     Active Substance: ADALIMUMAB
     Indication: COLITIS ULCERATIVE
     Route: 058
     Dates: start: 20161005, end: 20161005
  2. DIOVAN [Concomitant]
     Active Substance: VALSARTAN
     Indication: HYPERTENSION
     Route: 048
     Dates: start: 20060927, end: 20161112
  3. TACROBELL [Concomitant]
     Active Substance: TACROLIMUS
     Indication: IMMUNOMODULATORY THERAPY
     Route: 048
     Dates: start: 20071023, end: 20161128
  4. TALION [Concomitant]
     Active Substance: BEPOTASTINE
     Indication: RASH
     Route: 048
     Dates: start: 20161102, end: 20161112
  5. VANCOMYCIN [Concomitant]
     Active Substance: VANCOMYCIN
     Indication: CELLULITIS
     Route: 042
     Dates: start: 20161203
  6. ADVAGRAF [Concomitant]
     Active Substance: TACROLIMUS
     Indication: IMMUNOMODULATORY THERAPY
     Route: 048
     Dates: start: 20161130
  7. ASACOL DR [Concomitant]
     Indication: COLITIS ULCERATIVE
     Route: 048
     Dates: start: 20160817
  8. TUBES 2 150/300 [Concomitant]
     Indication: LATENT TUBERCULOSIS
     Route: 048
     Dates: start: 20160921
  9. TAPOCIN [Concomitant]
     Indication: CELLULITIS
     Route: 042
     Dates: start: 20161118, end: 20161202
  10. RENALMIN [Concomitant]
     Indication: VITAMIN SUPPLEMENTATION
     Route: 048
     Dates: start: 20161116
  11. PRANDIN [Concomitant]
     Active Substance: REPAGLINIDE
     Indication: IMMUNOMODULATORY THERAPY
     Route: 048
     Dates: start: 20080218
  12. TAZOPERAN [Concomitant]
     Indication: CELLULITIS
     Route: 042
     Dates: start: 20161114, end: 20161203
  13. HUMIRA [Suspect]
     Active Substance: ADALIMUMAB
     Route: 058
     Dates: start: 20161019, end: 20161019
  14. AZEPTIN [Concomitant]
     Active Substance: AZELASTINE HYDROCHLORIDE
     Indication: RASH
     Route: 048
     Dates: start: 20161102, end: 20161112
  15. FEROBA U [Concomitant]
     Indication: ANAEMIA PROPHYLAXIS
     Route: 048
     Dates: start: 20161123
  16. HUMIRA [Suspect]
     Active Substance: ADALIMUMAB
     Route: 058
     Dates: start: 20161102, end: 20161102
  17. DICAMAX [Concomitant]
     Indication: MINERAL SUPPLEMENTATION
     Route: 048
     Dates: start: 20161124
  18. ZYLORIC [Concomitant]
     Active Substance: ALLOPURINOL
     Indication: CHRONIC KIDNEY DISEASE
     Route: 048
     Dates: start: 20160121, end: 20161113
  19. TASNA [Concomitant]
     Indication: ACIDOSIS
     Route: 051
     Dates: start: 20161114, end: 20161120
  20. OLDECA [Concomitant]
     Indication: HYPERTENSION
     Route: 048
     Dates: start: 20161118

REACTIONS (1)
  - Renal failure [Recovering/Resolving]

NARRATIVE: CASE EVENT DATE: 20161113
